FAERS Safety Report 8737880 (Version 2)
Quarter: 2013Q1

REPORT INFORMATION
  Report Type: Spontaneous
  Country: GB (occurrence: GB)
  Receive Date: 20120823
  Receipt Date: 20130202
  Transmission Date: 20140127
  Serious: Yes (Hospitalization)
  Sender: FDA-Public Use
  Company Number: GB-AMGEN-GBRSP2012052482

PATIENT
  Age: 50 Year
  Sex: Female

DRUGS (5)
  1. NEULASTA [Suspect]
     Indication: NEUTROPENIA
     Dosage: UNK
  2. CIPROFLOXACIN [Concomitant]
     Indication: WOUND
     Dosage: UNK
  3. FLUOROURACIL 5 FU [Concomitant]
     Indication: BREAST CANCER
     Dosage: UNK
  4. EPIRUBICIN                         /00699302/ [Concomitant]
     Indication: BREAST CANCER
     Dosage: UNK
  5. CYCLOPHOSPHAMIDE [Concomitant]
     Indication: BREAST CANCER
     Dosage: UNK

REACTIONS (2)
  - Febrile neutropenia [Unknown]
  - Pseudomonas infection [Unknown]
